FAERS Safety Report 5810842-3 (Version None)
Quarter: 2008Q3

REPORT INFORMATION
  Report Type: 
  Country: None (occurrence: None)
  Receive Date: 20080710
  Receipt Date: 20080625
  Transmission Date: 20090109
  Serious: Yes (Other)
  Sender: FDA-Public Use
  Company Number: 2008SP010743

PATIENT
  Age: 29 Year
  Sex: Female

DRUGS (1)
  1. CORICIDIN HBP MAX STRENGTH FLU (2 MG) [Suspect]
     Indication: INFLUENZA
     Dosage: 4 MG; ONCE; PO
     Route: 048
     Dates: start: 20080522

REACTIONS (8)
  - ABDOMINAL DISTENSION [None]
  - CHILLS [None]
  - JOINT SWELLING [None]
  - OEDEMA PERIPHERAL [None]
  - PAIN [None]
  - PHARYNGEAL OEDEMA [None]
  - TONSILLITIS [None]
  - URTICARIA [None]
